FAERS Safety Report 13234015 (Version 1)
Quarter: 2017Q1

REPORT INFORMATION
  Report Type: Spontaneous
  Country: US (occurrence: US)
  Receive Date: 20170214
  Receipt Date: 20170214
  Transmission Date: 20170428
  Serious: Yes (Other)
  Sender: FDA-Public Use
  Company Number: None

PATIENT
  Age: 44 Year
  Sex: Male
  Weight: 85.05 kg

DRUGS (7)
  1. TIZANIDINE. [Concomitant]
     Active Substance: TIZANIDINE
  2. COUMADIN [Concomitant]
     Active Substance: WARFARIN SODIUM
  3. CLOPIDOGREL [Suspect]
     Active Substance: CLOPIDOGREL BISULFATE
     Indication: PRODUCT USED FOR UNKNOWN INDICATION
     Dosage: ?          QUANTITY:45 TABLET(S);?
     Route: 048
  4. LEVOTHYRIOXINE [Concomitant]
  5. BACLOFEN. [Concomitant]
     Active Substance: BACLOFEN
  6. ELAVOL [Concomitant]
  7. TOPROL XL [Concomitant]
     Active Substance: METOPROLOL SUCCINATE

REACTIONS (3)
  - Peripheral swelling [None]
  - Headache [None]
  - Product label issue [None]

NARRATIVE: CASE EVENT DATE: 20161206
